FAERS Safety Report 18251671 (Version 1)
Quarter: 2020Q3

REPORT INFORMATION
  Report Type: Other
  Country: US (occurrence: US)
  Receive Date: 20200910
  Receipt Date: 20200910
  Transmission Date: 20201103
  Serious: Yes (Death, Hospitalization)
  Sender: FDA-Public Use
  Company Number: US-NUVO PHARMACEUTICALS INC-2089583

PATIENT
  Age: 28 Year
  Sex: Male

DRUGS (1)
  1. OXYCODONE HYDROCHLORIDE. [Suspect]
     Active Substance: OXYCODONE HYDROCHLORIDE
     Indication: PANCREATITIS CHRONIC
     Route: 054

REACTIONS (5)
  - Incorrect route of product administration [Fatal]
  - Intentional product misuse [Fatal]
  - Overdose [Fatal]
  - Unresponsive to stimuli [Fatal]
  - Depressed level of consciousness [Fatal]
